FAERS Safety Report 25191079 (Version 2)
Quarter: 2025Q2

REPORT INFORMATION
  Report Type: Report from Study
  Country: US (occurrence: US)
  Receive Date: 20250411
  Receipt Date: 20250613
  Transmission Date: 20250716
  Serious: Yes (Hospitalization)
  Sender: EISAI
  Company Number: US-Eisai-EC-2025-185927

PATIENT
  Age: 71 Year
  Sex: Female
  Weight: 91.1 kg

DRUGS (2)
  1. LENVIMA [Suspect]
     Active Substance: LENVATINIB
     Indication: Endometrial cancer
     Dates: start: 20250106, end: 20250407
  2. KEYTRUDA [Concomitant]
     Active Substance: PEMBROLIZUMAB
     Indication: Endometrial cancer
     Dates: end: 2025

REACTIONS (5)
  - Feeding disorder [Recovering/Resolving]
  - Syncope [Recovering/Resolving]
  - Nausea [Unknown]
  - Fatigue [Unknown]
  - Fluid intake reduced [Recovering/Resolving]

NARRATIVE: CASE EVENT DATE: 20250101
